FAERS Safety Report 6000037-5 (Version None)
Quarter: 2008Q4

REPORT INFORMATION
  Report Type: 
  Country: None (occurrence: None)
  Receive Date: 20081211
  Receipt Date: 20081211
  Transmission Date: 20090506
  Serious: Yes (Other)
  Sender: FDA-Public Use
  Company Number: None

PATIENT
  Age: 43 Year
  Sex: Male
  Weight: 83.9154 kg

DRUGS (2)
  1. LAMICTAL [Suspect]
     Indication: BIPOLAR II DISORDER
     Dosage: 50MG ONCE A DAY PO
     Route: 048
     Dates: start: 20081129, end: 20081209
  2. NAPROSYN [Suspect]
     Indication: ARTHRALGIA
     Dosage: NOT SURE BUT 12 HOUR VERSION ONCE A DAY PO
     Route: 048
     Dates: start: 20081206, end: 20081209

REACTIONS (3)
  - PRODUCT QUALITY ISSUE [None]
  - PRURITUS GENERALISED [None]
  - RASH GENERALISED [None]
